FAERS Safety Report 6182344-9 (Version None)
Quarter: 2009Q2

REPORT INFORMATION
  Report Type: 
  Country: None (occurrence: None)
  Receive Date: 20090505
  Receipt Date: 20090505
  Transmission Date: 20091009
  Serious: Yes (Death)
  Sender: FDA-Public Use
  Company Number: None

PATIENT
  Sex: Male
  Weight: 85 kg

DRUGS (4)
  1. FLUDARABINE PHOSPHATE [Suspect]
     Indication: ACUTE LYMPHOCYTIC LEUKAEMIA
     Dosage: 60MG
     Dates: start: 20090313, end: 20090317
  2. THIOTEPA [Suspect]
     Dosage: 440MG
     Dates: start: 20090313, end: 20090314
  3. ANTI-THYMOCYTE GLOBULIN NOS [Concomitant]
  4. TOTAL BODY IRRADIATION [Concomitant]

REACTIONS (2)
  - GENERAL PHYSICAL HEALTH DETERIORATION [None]
  - PNEUMONIA PARAINFLUENZAE VIRAL [None]
